FAERS Safety Report 25910715 (Version 1)
Quarter: 2025Q4

REPORT INFORMATION
  Report Type: Spontaneous
  Country: MY (occurrence: MY)
  Receive Date: 20251013
  Receipt Date: 20251013
  Transmission Date: 20260117
  Serious: Yes (Disabling)
  Sender: NOVARTIS
  Company Number: MY-002147023-NVSC2025MY138423

PATIENT
  Age: 47 Year
  Sex: Female

DRUGS (2)
  1. SECUKINUMAB [Suspect]
     Active Substance: SECUKINUMAB
     Indication: Psoriasis
     Dosage: 300 MG (4-WEEKLY)
     Route: 058
     Dates: start: 202501
  2. SECUKINUMAB [Suspect]
     Active Substance: SECUKINUMAB
     Indication: Psoriatic arthropathy

REACTIONS (2)
  - Tooth loss [Not Recovered/Not Resolved]
  - Gingival disorder [Unknown]

NARRATIVE: CASE EVENT DATE: 20250101
